FAERS Safety Report 5632742-4 (Version None)
Quarter: 2008Q1

REPORT INFORMATION
  Report Type: 
  Country: None (occurrence: None)
  Receive Date: 20080221
  Receipt Date: 20080213
  Transmission Date: 20080703
  Serious: Yes (Other)
  Sender: FDA-Public Use
  Company Number: US-JNJFOC-20080203597

PATIENT
  Sex: Male
  Weight: 68.95 kg

DRUGS (4)
  1. DURAGESIC-100 [Suspect]
     Indication: PAIN
     Route: 062
  2. CYMBALTA [Concomitant]
     Indication: NEURALGIA
     Route: 048
  3. HYDROCODONE BITARTRATE [Concomitant]
     Indication: PAIN
     Route: 048
  4. BACLOFEN [Concomitant]
     Indication: MUSCLE SPASMS
     Route: 048

REACTIONS (3)
  - CHEST PAIN [None]
  - HYPOAESTHESIA [None]
  - INFLUENZA [None]
